FAERS Safety Report 9478622 (Version 2)
Quarter: 2013Q3

REPORT INFORMATION
  Report Type: Report from Study
  Country: DE (occurrence: DE)
  Receive Date: 20130827
  Receipt Date: 20130918
  Transmission Date: 20140515
  Serious: Yes (Hospitalization)
  Sender: FDA-Public Use
  Company Number: DE-SHIRE-ALL1-2013-05656

PATIENT
  Age: 37 Year
  Sex: Male
  Weight: 57 kg

DRUGS (1)
  1. IDURSULFASE [Suspect]
     Indication: MUCOPOLYSACCHARIDOSIS II
     Dosage: 30 MG, 1X/WEEK
     Route: 041
     Dates: start: 20080115

REACTIONS (3)
  - Vertigo [Recovered/Resolved with Sequelae]
  - Fall [Recovered/Resolved]
  - Laceration [Recovered/Resolved with Sequelae]
